FAERS Safety Report 5144853-0 (Version None)
Quarter: 2006Q4

REPORT INFORMATION
  Report Type: 
  Country: None (occurrence: None)
  Receive Date: 20061107
  Receipt Date: 20061026
  Transmission Date: 20070319
  Serious: Yes (Hospitalization, Other)
  Sender: FDA-Public Use
  Company Number: PHBS2006BR16839

PATIENT
  Age: 60 Year
  Sex: Female
  Weight: 57 kg

DRUGS (2)
  1. FORASEQ [Suspect]
     Indication: ASTHMA
     Dosage: UNK, BID
     Dates: start: 20030101
  2. VENLAFAXIINE HCL [Concomitant]
     Indication: DEPRESSION
     Dosage: UNK, BID
     Route: 048
     Dates: start: 19950101

REACTIONS (4)
  - DYSPNOEA [None]
  - INTUBATION [None]
  - LOSS OF CONSCIOUSNESS [None]
  - MALAISE [None]
